FAERS Safety Report 7281621-8 (Version None)
Quarter: 2011Q1

REPORT INFORMATION
  Report Type: 
  Country: None (occurrence: None)
  Receive Date: 20110208
  Receipt Date: 20110202
  Transmission Date: 20110831
  Serious: Yes (Death, Life-Threatening)
  Sender: FDA-Public Use
  Company Number: PHHY2010JP80191

PATIENT
  Sex: Female

DRUGS (8)
  1. GLYBURIDE [Concomitant]
     Dosage: 2 DF, UNK
     Route: 048
     Dates: start: 20070730, end: 20100414
  2. METHYLCOBALAMIN [Concomitant]
     Indication: PROPHYLAXIS
     Dosage: 3 DF, UNK
     Route: 048
     Dates: start: 20061030, end: 20100414
  3. CO-DIOVAN [Suspect]
     Indication: HYPERTENSION
     Dosage: 1 DF, DAILY
     Route: 048
     Dates: start: 20090427
  4. MEVALOTIN [Concomitant]
     Dosage: 1 DF, UNK
     Route: 048
     Dates: start: 20070303, end: 20100414
  5. GANATON [Concomitant]
     Indication: PROPHYLAXIS
     Dosage: 3 DF, UNK
     Route: 048
     Dates: start: 20071112, end: 20100414
  6. ARIMIDEX [Concomitant]
     Dosage: 1 DF, UNK
     Route: 048
     Dates: start: 20070417, end: 20100414
  7. GASTER D [Concomitant]
     Indication: PROPHYLAXIS
     Dosage: 1 DF, UNK
     Route: 048
     Dates: start: 20061030, end: 20100414
  8. TALION [Concomitant]
     Dosage: 2 DF, UNK
     Route: 048
     Dates: start: 20080814, end: 20100414

REACTIONS (2)
  - CEREBRAL HAEMORRHAGE [None]
  - BLOOD PRESSURE INCREASED [None]
